FAERS Safety Report 19165049 (Version 1)
Quarter: 2021Q2

REPORT INFORMATION
  Report Type: Spontaneous
  Country: JM (occurrence: JM)
  Receive Date: 20210421
  Receipt Date: 20210421
  Transmission Date: 20210717
  Serious: Yes (Other)
  Sender: FDA-Public Use
  Company Number: JM-APOTEX-2021AP009914

PATIENT
  Age: 68 Year
  Sex: Female

DRUGS (1)
  1. PAXIL [Suspect]
     Active Substance: PAROXETINE HYDROCHLORIDE
     Indication: MAJOR DEPRESSION
     Dosage: 20 MG
     Route: 065

REACTIONS (2)
  - Treatment noncompliance [Unknown]
  - Drug dependence [Unknown]
